FAERS Safety Report 8534880-5 (Version None)
Quarter: 2012Q3

REPORT INFORMATION
  Report Type: 
  Country: None (occurrence: None)
  Receive Date: 20120724
  Receipt Date: 20120716
  Transmission Date: 20120928
  Serious: Yes (Other)
  Sender: FDA-Public Use
  Company Number: DE-UCBSA-057041

PATIENT
  Sex: Male
  Weight: 110 kg

DRUGS (11)
  1. NEUPRO [Suspect]
     Indication: PARKINSON'S DISEASE
     Route: 062
  2. CITALOPRAM HYDROBROMIDE [Concomitant]
     Indication: DEPRESSION
  3. TAMSOLUSIN RETARD [Concomitant]
     Indication: PROSTATIC DISORDER
  4. STALEVO 100 [Concomitant]
     Indication: PARKINSON'S DISEASE
     Dosage: 100/25/200 MG-3 AT 08:00 HRS AND 3 AT 14:00 HRS
  5. OMEPRAZOLE [Concomitant]
  6. LEVODOP RETARD [Concomitant]
     Dosage: 200/50 MG
  7. METOPROLOL SUCCINATE [Concomitant]
  8. ASPIRIN [Concomitant]
  9. BROMAZANIL [Concomitant]
     Dosage: 6 MG, IF NEEDED 3 TO 4.5 MG
  10. AMANTADINE HCL [Concomitant]
     Indication: PARKINSON'S DISEASE
  11. TAMBOCOR [Concomitant]
     Dosage: 100 MG, IF  NEEDED AS RESCUE MEDICATION 200-300 MG

REACTIONS (5)
  - DERMATITIS ALLERGIC [None]
  - ERECTILE DYSFUNCTION [None]
  - APPLICATION SITE REACTION [None]
  - PATHOLOGICAL GAMBLING [None]
  - LIBIDO INCREASED [None]
